FAERS Safety Report 12427020 (Version 1)
Quarter: 2016Q2

REPORT INFORMATION
  Report Type: Spontaneous
  Country: US (occurrence: US)
  Receive Date: 20160601
  Receipt Date: 20160601
  Transmission Date: 20160815
  Serious: No
  Sender: FDA-Public Use
  Company Number: US-BAYER-200325010BWH

PATIENT
  Age: 53 Year
  Sex: Female
  Weight: 53.18 kg

DRUGS (8)
  1. AVELOX [Suspect]
     Active Substance: MOXIFLOXACIN HYDROCHLORIDE
     Indication: SINUSITIS
     Route: 048
  2. DARVON [Concomitant]
     Active Substance: PROPOXYPHENE HYDROCHLORIDE
  3. INTAL [Concomitant]
     Active Substance: CROMOLYN SODIUM
  4. ZYRTEC [CETIRIZINE HYDROCHLORIDE] [Concomitant]
  5. AVELOX [Suspect]
     Active Substance: MOXIFLOXACIN HYDROCHLORIDE
     Indication: SINUSITIS
     Route: 048
     Dates: start: 20030922, end: 20030929
  6. POTASSIUM [POTASSIUM] [Concomitant]
  7. MONTELUKAST SODIUM. [Concomitant]
     Active Substance: MONTELUKAST SODIUM
  8. ATROVENT [Concomitant]
     Active Substance: IPRATROPIUM BROMIDE

REACTIONS (7)
  - Rash macular [Recovered/Resolved]
  - Arthralgia [Recovered/Resolved]
  - Arthralgia [Recovered/Resolved]
  - Peripheral swelling [Recovered/Resolved]
  - Myalgia [Recovered/Resolved]
  - Pain in extremity [Recovered/Resolved]
  - Facial pain [Recovered/Resolved]

NARRATIVE: CASE EVENT DATE: 20030927
